FAERS Safety Report 6600487-X (Version None)
Quarter: 2010Q1

REPORT INFORMATION
  Report Type: 
  Country: None (occurrence: None)
  Receive Date: 20100223
  Receipt Date: 20100223
  Transmission Date: 20100710
  Serious: Yes (Disabling)
  Sender: FDA-Public Use
  Company Number: None

PATIENT
  Age: 46 Year
  Sex: Female
  Weight: 85.2762 kg

DRUGS (1)
  1. LEVAQUIN [Suspect]
     Indication: PNEUMONIA PRIMARY ATYPICAL
     Dosage: ONE PILL ONCE A  DAY
     Dates: start: 20091205, end: 20091214

REACTIONS (7)
  - ARTHRALGIA [None]
  - BACK PAIN [None]
  - MOVEMENT DISORDER [None]
  - MUSCULOSKELETAL STIFFNESS [None]
  - NECK PAIN [None]
  - PAIN [None]
  - PAIN IN JAW [None]
